FAERS Safety Report 11540546 (Version 1)
Quarter: 2015Q3

REPORT INFORMATION
  Report Type: Spontaneous
  Country: US (occurrence: US)
  Receive Date: 20150923
  Receipt Date: 20150923
  Transmission Date: 20151125
  Serious: No
  Sender: FDA-Public Use
  Company Number: US-BEH-2015049481

PATIENT
  Sex: Female
  Weight: 67 kg

DRUGS (53)
  1. BUTORPHANOL [Concomitant]
     Active Substance: BUTORPHANOL
  2. NEURONTIN [Concomitant]
     Active Substance: GABAPENTIN
  3. MECLIZINE [Concomitant]
     Active Substance: MECLIZINE\MECLIZINE HYDROCHLORIDE
  4. AZITHROMYCIN [Concomitant]
     Active Substance: AZITHROMYCIN ANHYDROUS
  5. SODIUM CHLORIDE. [Concomitant]
     Active Substance: SODIUM CHLORIDE
  6. LYRICA [Concomitant]
     Active Substance: PREGABALIN
  7. TOPAMAX [Concomitant]
     Active Substance: TOPIRAMATE
  8. MELATONIN [Concomitant]
     Active Substance: MELATONIN
  9. MUCINEX [Concomitant]
     Active Substance: GUAIFENESIN
  10. MARINOL [Concomitant]
     Active Substance: DRONABINOL
  11. MAALOX ANTACID [Concomitant]
     Active Substance: ALUMINUM HYDROXIDE\DIMETHICONE\MAGNESIUM HYDROXIDE
  12. TRAMADOL. [Concomitant]
     Active Substance: TRAMADOL
  13. SINGULAIR [Concomitant]
     Active Substance: MONTELUKAST SODIUM
  14. ALBUTEROL. [Concomitant]
     Active Substance: ALBUTEROL
  15. RELPAX [Concomitant]
     Active Substance: ELETRIPTAN HYDROBROMIDE
  16. RANITIDINE [Concomitant]
     Active Substance: RANITIDINE\RANITIDINE HYDROCHLORIDE
  17. AMLODIPINE [Concomitant]
     Active Substance: AMLODIPINE BESYLATE
  18. NORMAL SALINE [Concomitant]
     Active Substance: SODIUM CHLORIDE
  19. BENICAR [Concomitant]
     Active Substance: OLMESARTAN MEDOXOMIL
  20. AMITRIPTYLINE [Concomitant]
     Active Substance: AMITRIPTYLINE
  21. PRIVIGEN [Suspect]
     Active Substance: HUMAN IMMUNOGLOBULIN G
     Indication: IMMUNODEFICIENCY COMMON VARIABLE
     Dosage: 5 G VIALS
     Route: 042
     Dates: start: 20150212
  22. EFFEXOR [Concomitant]
     Active Substance: VENLAFAXINE HYDROCHLORIDE
  23. MORPHINE [Concomitant]
     Active Substance: MORPHINE
  24. MIRALAX [Concomitant]
     Active Substance: POLYETHYLENE GLYCOL 3350
  25. XYLOCAINE [Concomitant]
     Active Substance: LIDOCAINE HYDROCHLORIDE
  26. DIPHENHYDRAMINE. [Concomitant]
     Active Substance: DIPHENHYDRAMINE
  27. IBUPROFEN. [Concomitant]
     Active Substance: IBUPROFEN
  28. NAMENDA [Concomitant]
     Active Substance: MEMANTINE HYDROCHLORIDE
  29. FROVA [Concomitant]
     Active Substance: FROVATRIPTAN SUCCINATE
  30. MELATONIN [Concomitant]
     Active Substance: MELATONIN
  31. PRIVIGEN [Suspect]
     Active Substance: HUMAN IMMUNOGLOBULIN G
     Indication: MULTIPLE SCLEROSIS
     Dosage: 40 G VIALS
     Route: 042
     Dates: start: 20150212
  32. EPIPEN [Concomitant]
     Active Substance: EPINEPHRINE
  33. ZOFRAN [Concomitant]
     Active Substance: ONDANSETRON HYDROCHLORIDE
  34. DRONABINOL. [Concomitant]
     Active Substance: DRONABINOL
  35. CYANOCOBALAMIN. [Concomitant]
     Active Substance: CYANOCOBALAMIN
  36. DHEA ACETATE [Concomitant]
     Active Substance: PRASTERONE ACETATE
  37. CHLORTHALIDONE. [Concomitant]
     Active Substance: CHLORTHALIDONE
  38. PROMETHAZINE [Concomitant]
     Active Substance: PROMETHAZINE\PROMETHAZINE HYDROCHLORIDE
  39. ZITHROMAX [Concomitant]
     Active Substance: AZITHROMYCIN DIHYDRATE
  40. CITALOPRAM [Concomitant]
     Active Substance: CITALOPRAM HYDROBROMIDE
  41. SCOPOLAMINE [Concomitant]
     Active Substance: SCOPOLAMINE
     Dosage: PATCH
  42. HEPARIN [Concomitant]
     Active Substance: HEPARIN SODIUM
  43. CEFTIN [Concomitant]
     Active Substance: CEFUROXIME AXETIL
  44. TEGRETOL [Concomitant]
     Active Substance: CARBAMAZEPINE
  45. ATIVAN [Concomitant]
     Active Substance: LORAZEPAM
  46. VALIUM [Concomitant]
     Active Substance: DIAZEPAM
  47. NEXIUM [Concomitant]
     Active Substance: ESOMEPRAZOLE MAGNESIUM
  48. CHLORPROMAZINE. [Concomitant]
     Active Substance: CHLORPROMAZINE
  49. ACETAMINOPHEN. [Concomitant]
     Active Substance: ACETAMINOPHEN
  50. BACLOFEN. [Concomitant]
     Active Substance: BACLOFEN
  51. NYSTATIN. [Concomitant]
     Active Substance: NYSTATIN
  52. SONATA [Concomitant]
     Active Substance: ZALEPLON
  53. CRANBERRY. [Concomitant]
     Active Substance: CRANBERRY

REACTIONS (1)
  - Device occlusion [Unknown]
